FAERS Safety Report 7242548-0 (Version None)
Quarter: 2010Q4

REPORT INFORMATION
  Report Type: 
  Country: None (occurrence: None)
  Receive Date: 20101130
  Receipt Date: 20090818
  Transmission Date: 20110411
  Serious: Yes (Hospitalization)
  Sender: FDA-Public Use
  Company Number: 2009-201021-NL

PATIENT
  Age: 23 Year
  Sex: Female
  Weight: 59 kg

DRUGS (11)
  1. NUVARING [Suspect]
     Indication: CONTRACEPTION
     Dosage: 1 DF; QM; VAG
     Route: 067
     Dates: start: 20060501, end: 20061101
  2. COUMADIN [Suspect]
     Indication: ANTICOAGULANT THERAPY
  3. LOVENOX [Suspect]
     Indication: ANTICOAGULANT THERAPY
  4. HEPARIN [Suspect]
     Indication: ANTICOAGULANT THERAPY
  5. HYDROCORTISONE [Concomitant]
  6. METROGEL [Concomitant]
  7. AZITHROMYCIN [Concomitant]
  8. BENZACLIN [Concomitant]
  9. LIQUIBID [Concomitant]
  10. NASONEX [Concomitant]
  11. DIFLUCAN [Concomitant]

REACTIONS (9)
  - ACNE [None]
  - BLOOD DISORDER [None]
  - DEEP VEIN THROMBOSIS [None]
  - DERMATITIS [None]
  - LYMPHADENOPATHY [None]
  - MENSTRUATION DELAYED [None]
  - PHARYNGITIS [None]
  - PULMONARY EMBOLISM [None]
  - PULMONARY INFARCTION [None]
